FAERS Safety Report 5891588-2 (Version None)
Quarter: 2008Q3

REPORT INFORMATION
  Report Type: 
  Country: None (occurrence: None)
  Receive Date: 20080922
  Receipt Date: 20080909
  Transmission Date: 20090109
  Serious: Yes (Hospitalization)
  Sender: FDA-Public Use
  Company Number: US-ROCHE-586337

PATIENT
  Age: 13 Year
  Sex: Male

DRUGS (1)
  1. KETOROLAC TROMETHAMINE [Suspect]
     Indication: INFLAMMATION
     Route: 042

REACTIONS (1)
  - INFLAMMATORY MYOFIBROBLASTIC TUMOUR [None]
